FAERS Safety Report 7122142-2 (Version None)
Quarter: 2010Q4

REPORT INFORMATION
  Report Type: 
  Country: None (occurrence: None)
  Receive Date: 20101122
  Receipt Date: 20101122
  Transmission Date: 20110411
  Serious: No
  Sender: FDA-Public Use
  Company Number: None

PATIENT
  Sex: Female
  Weight: 61.5 kg

DRUGS (5)
  1. BUSULFAN [Suspect]
     Dosage: 640 MG
  2. CYTARABINE [Suspect]
     Dosage: 26720 MG
  3. DAUNORUBICIN [Suspect]
     Dosage: 420 MG
  4. ETOPOSIDE [Suspect]
     Dosage: 5544 MG
  5. G-CSF (FILGRASTIM, AMGEN) [Suspect]
     Dosage: 24000 MCG

REACTIONS (1)
  - THROMBOCYTOPENIA [None]
